FAERS Safety Report 10753967 (Version 1)
Quarter: 2015Q1

REPORT INFORMATION
  Report Type: Spontaneous
  Country: US (occurrence: US)
  Receive Date: 20150202
  Receipt Date: 20150202
  Transmission Date: 20150721
  Serious: No
  Sender: FDA-Public Use
  Company Number: US-LEO PHARMA-231724

PATIENT
  Age: 58 Year
  Sex: Female
  Weight: 50.8 kg

DRUGS (1)
  1. PICATO [Suspect]
     Active Substance: INGENOL MEBUTATE
     Indication: ACTINIC KERATOSIS
     Route: 061
     Dates: start: 20141205

REACTIONS (5)
  - Excoriation [Not Recovered/Not Resolved]
  - Application site pain [Not Recovered/Not Resolved]
  - Blister rupture [Not Recovered/Not Resolved]
  - Erythema [Not Recovered/Not Resolved]
  - Application site vesicles [Not Recovered/Not Resolved]

NARRATIVE: CASE EVENT DATE: 20141205
